FAERS Safety Report 4816252-X (Version None)
Quarter: 2005Q4

REPORT INFORMATION
  Report Type: 
  Country: None (occurrence: None)
  Receive Date: 20051026
  Receipt Date: 20051013
  Transmission Date: 20060501
  Serious: Yes (Hospitalization)
  Sender: FDA-Public Use
  Company Number: 2005-09-1749

PATIENT
  Age: 43 Year
  Sex: Female

DRUGS (1)
  1. CLARITIN [Suspect]
     Indication: DERMATITIS ATOPIC
     Dosage: 10 MG ORAL
     Route: 048
     Dates: start: 20050921, end: 20050921

REACTIONS (3)
  - DIZZINESS [None]
  - FEELING ABNORMAL [None]
  - NAUSEA [None]
